FAERS Safety Report 6087355-X (Version None)
Quarter: 2009Q1

REPORT INFORMATION
  Report Type: 
  Country: None (occurrence: None)
  Receive Date: 20090223
  Receipt Date: 20090217
  Transmission Date: 20090719
  Serious: Yes (Other)
  Sender: FDA-Public Use
  Company Number: B0558408A

PATIENT
  Age: 9 Year
  Sex: Male
  Weight: 32 kg

DRUGS (3)
  1. RELENZA [Suspect]
     Dosage: 10MG TWICE PER DAY
     Route: 055
     Dates: start: 20090202
  2. CALONAL [Concomitant]
     Route: 048
     Dates: start: 20090201, end: 20090201
  3. FLUNASE (JAPAN) [Concomitant]
     Route: 045
     Dates: start: 20090101

REACTIONS (5)
  - ABDOMINAL PAIN [None]
  - ABNORMAL BEHAVIOUR [None]
  - ALTERED STATE OF CONSCIOUSNESS [None]
  - DIARRHOEA [None]
  - MEMORY IMPAIRMENT [None]
